FAERS Safety Report 24863329 (Version 1)
Quarter: 2025Q1

REPORT INFORMATION
  Report Type: Spontaneous
  Country: US (occurrence: US)
  Receive Date: 20250120
  Receipt Date: 20250120
  Transmission Date: 20250408
  Serious: No
  Sender: SANOFI AVENTIS
  Company Number: US-SA-2025SA017199

PATIENT
  Age: 25 Year
  Sex: Male

DRUGS (2)
  1. DUPIXENT [Suspect]
     Active Substance: DUPILUMAB
     Indication: Dermatitis
     Dosage: 300 MG, QOW
     Route: 058
     Dates: start: 20240813
  2. MODAFINIL [Concomitant]
     Active Substance: MODAFINIL

REACTIONS (3)
  - Conjunctivitis [Unknown]
  - Eye irritation [Unknown]
  - Drug ineffective for unapproved indication [Unknown]
